FAERS Safety Report 5769358-5 (Version None)
Quarter: 2008Q2

REPORT INFORMATION
  Report Type: 
  Country: None (occurrence: None)
  Receive Date: 20080612
  Receipt Date: 20080327
  Transmission Date: 20081010
  Serious: No
  Sender: FDA-Public Use
  Company Number: US-ABBOTT-08P-163-0444280-00

PATIENT
  Sex: Female
  Weight: 68.1 kg

DRUGS (7)
  1. HUMIRA [Suspect]
     Indication: RHEUMATOID ARTHRITIS
     Route: 058
     Dates: start: 20070901, end: 20071001
  2. HUMIRA [Suspect]
     Dates: start: 20071001, end: 20071001
  3. HUMIRA [Suspect]
     Dates: start: 20071001, end: 20080206
  4. HUMIRA [Suspect]
     Dates: start: 20080220
  5. LEFLUNOMIDE [Concomitant]
     Indication: RHEUMATOID ARTHRITIS
  6. HYDROXYCHLOROQUINE SULFATE [Concomitant]
     Indication: RHEUMATOID ARTHRITIS
     Route: 048
  7. PAIN MEDICATION [Concomitant]
     Indication: ARTHRALGIA
     Route: 048

REACTIONS (3)
  - ALOPECIA [None]
  - PHARYNGITIS STREPTOCOCCAL [None]
  - SINUSITIS [None]
